FAERS Safety Report 6257860-1 (Version None)
Quarter: 2009Q3

REPORT INFORMATION
  Report Type: 
  Country: None (occurrence: None)
  Receive Date: 20090707
  Receipt Date: 20070726
  Transmission Date: 20100115
  Serious: Yes (Hospitalization, Other)
  Sender: FDA-Public Use
  Company Number: US-ASTRAZENECA-2007UW02127

PATIENT
  Age: 43 Year
  Sex: Female
  Weight: 98.4 kg

DRUGS (17)
  1. SEROQUEL [Suspect]
     Indication: TACHYPHRENIA
     Route: 048
     Dates: start: 20020208
  2. SEROQUEL [Suspect]
     Indication: BIPOLAR DISORDER
     Route: 048
     Dates: start: 20020208
  3. SEROQUEL [Suspect]
     Route: 048
     Dates: start: 20021201, end: 20030101
  4. SEROQUEL [Suspect]
     Route: 048
     Dates: start: 20021201, end: 20030101
  5. SEROQUEL [Suspect]
     Route: 048
     Dates: start: 20030324
  6. SEROQUEL [Suspect]
     Route: 048
     Dates: start: 20030324
  7. SEROQUEL [Suspect]
     Route: 048
     Dates: start: 20071101
  8. SEROQUEL [Suspect]
     Route: 048
     Dates: start: 20071101
  9. DEPAKOTE [Concomitant]
     Route: 048
     Dates: start: 20030401
  10. DEPAKOTE [Concomitant]
     Route: 048
     Dates: start: 20071101
  11. REDUX [Concomitant]
     Indication: WEIGHT CONTROL
     Route: 048
     Dates: start: 19950101
  12. LEXAPRO [Concomitant]
     Dosage: 10 MG - 20 MG
     Route: 048
     Dates: start: 20021203
  13. LEXAPRO [Concomitant]
     Route: 048
     Dates: start: 20070101
  14. ACTOS [Concomitant]
     Indication: BLOOD GLUCOSE
     Dosage: 15 MG - 50 MG
     Dates: start: 20030324
  15. PROZAC [Concomitant]
     Dosage: 20 MG - 60 MG
     Route: 048
     Dates: start: 19970130
  16. MONOPRIL [Concomitant]
     Indication: BLOOD PRESSURE
     Dates: start: 20030324
  17. ESTRACE [Concomitant]
     Dosage: 1 - 2 MG
     Dates: start: 19970130

REACTIONS (10)
  - BIOPSY BREAST [None]
  - BIOPSY SKIN [None]
  - BLOOD CHOLESTEROL INCREASED [None]
  - BLOOD TRIGLYCERIDES INCREASED [None]
  - BREAST DISORDER [None]
  - BREAST PAIN [None]
  - GASTRIC BYPASS [None]
  - PHARYNGITIS STREPTOCOCCAL [None]
  - TYPE 2 DIABETES MELLITUS [None]
  - VISION BLURRED [None]
